FAERS Safety Report 12610793 (Version 1)
Quarter: 2016Q3

REPORT INFORMATION
  Report Type: Spontaneous
  Country: US (occurrence: US)
  Receive Date: 20160801
  Receipt Date: 20160801
  Transmission Date: 20161109
  Serious: No
  Sender: FDA-Public Use
  Company Number: US-PFIZER INC-2016333361

PATIENT
  Age: 64 Year
  Sex: Female

DRUGS (1)
  1. LEVOXYL [Suspect]
     Active Substance: LEVOTHYROXINE SODIUM
     Indication: AUTOIMMUNE THYROIDITIS
     Dosage: UNK

REACTIONS (4)
  - Constipation [Unknown]
  - Flatulence [Unknown]
  - Abdominal distension [Unknown]
  - Product quality issue [Unknown]
